FAERS Safety Report 9815791 (Version 1)
Quarter: 2014Q1

REPORT INFORMATION
  Report Type: Spontaneous
  Country: US (occurrence: US)
  Receive Date: 20140114
  Receipt Date: 20140114
  Transmission Date: 20141002
  Serious: Yes (Death, Life-Threatening, Other)
  Sender: FDA-Public Use
  Company Number: US-NOVOPROD-394904

PATIENT
  Age: 62 Year
  Sex: Female

DRUGS (6)
  1. NOVOSEVEN RT [Suspect]
     Indication: ACQUIRED HAEMOPHILIA WITH ANTI FVIII, XI, OR XIII
     Dosage: EVERY 2 TO 4 HOURS FOR ABOUT 6 TO 8 TIMES A DAY
     Route: 042
  2. FEIBA [Concomitant]
     Indication: ACQUIRED HAEMOPHILIA WITH ANTI FVIII, XI, OR XIII
  3. RITUXAN [Concomitant]
     Indication: ACQUIRED HAEMOPHILIA WITH ANTI FVIII, XI, OR XIII
  4. AMINOCAPROIC ACID [Concomitant]
     Indication: ACQUIRED HAEMOPHILIA WITH ANTI FVIII, XI, OR XIII
  5. PREDNISONE [Concomitant]
     Indication: ACQUIRED HAEMOPHILIA WITH ANTI FVIII, XI, OR XIII
  6. IMMUNOGLOBULIN I.V [Concomitant]
     Indication: ACQUIRED HAEMOPHILIA WITH ANTI FVIII, XI, OR XIII
     Route: 042

REACTIONS (3)
  - Gastrointestinal haemorrhage [Fatal]
  - Contusion [Unknown]
  - Drug ineffective [Not Recovered/Not Resolved]
